FAERS Safety Report 10205868 (Version 1)
Quarter: 2014Q2

REPORT INFORMATION
  Report Type: Report from Study
  Country: US (occurrence: US)
  Receive Date: 20140530
  Receipt Date: 20140530
  Transmission Date: 20141212
  Serious: Yes (Hospitalization)
  Sender: FDA-Public Use
  Company Number: US-BIOGENIDEC-2014BI044343

PATIENT
  Sex: Female

DRUGS (15)
  1. TECFIDERA [Suspect]
     Indication: MULTIPLE SCLEROSIS
  2. KADIAN [Concomitant]
  3. CYMBALTA [Concomitant]
  4. LYRICA [Concomitant]
  5. HYDROSALINE [Concomitant]
  6. DEXILANT [Concomitant]
  7. ASPIRIN [Concomitant]
  8. HYDROCODONE [Concomitant]
  9. ALPRAZOLAM [Concomitant]
  10. NITROGLYCERIN [Concomitant]
  11. PLAVIX [Concomitant]
  12. FUROSEMIDE [Concomitant]
  13. DIPHEOXYLATE / ATROPINE [Concomitant]
  14. BACLOFEN [Concomitant]
  15. POTASSIUM [Concomitant]

REACTIONS (2)
  - Pneumonia [Unknown]
  - Cystitis [Unknown]
